FAERS Safety Report 6621104-9 (Version None)
Quarter: 2010Q1

REPORT INFORMATION
  Report Type: 
  Country: None (occurrence: None)
  Receive Date: 20100223
  Receipt Date: 20091211
  Transmission Date: 20100710
  Serious: No
  Sender: FDA-Public Use
  Company Number: 8050620

PATIENT
  Sex: Male
  Weight: 81.6475 kg

DRUGS (2)
  1. CIMZIA [Suspect]
     Dosage: 400 MG SUBCUTANEOUS, 400 MG SUBCUTANEOUS
     Route: 058
     Dates: start: 20090617
  2. CIMZIA [Suspect]

REACTIONS (2)
  - ENTEROCUTANEOUS FISTULA [None]
  - FISTULA DISCHARGE [None]
